FAERS Safety Report 9089424 (Version 1)
Quarter: 2013Q1

REPORT INFORMATION
  Report Type: Spontaneous
  Country: BR (occurrence: BR)
  Receive Date: 20130201
  Receipt Date: 20130201
  Transmission Date: 20140127
  Serious: Yes (Other)
  Sender: FDA-Public Use
  Company Number: PHHY2013BR009443

PATIENT
  Sex: Female
  Weight: 52 kg

DRUGS (2)
  1. RITALIN LA [Suspect]
     Indication: DISTURBANCE IN ATTENTION
     Dosage: UNK UKN, UNK
     Dates: start: 201210, end: 201211
  2. SIMVASTATIN [Concomitant]
     Dosage: UNK UKN, UNK

REACTIONS (2)
  - Depression [Recovering/Resolving]
  - Decreased appetite [Recovering/Resolving]
